FAERS Safety Report 5526473-9 (Version None)
Quarter: 2007Q4

REPORT INFORMATION
  Report Type: 
  Country: None (occurrence: None)
  Receive Date: 20071121
  Receipt Date: 20071121
  Transmission Date: 20080405
  Serious: Yes (Hospitalization)
  Sender: FDA-Public Use
  Company Number: None

PATIENT
  Sex: Male
  Weight: 80.6 kg

DRUGS (2)
  1. RITUXIMAB 710MG IV ON 11/9/2007 [Suspect]
     Indication: MANTLE CELL LYMPHOMA
     Dates: start: 20071102
  2. RITUXIMAB 710MG IV ON 11/9/2007 [Suspect]
     Indication: MANTLE CELL LYMPHOMA
     Dates: start: 20071109

REACTIONS (6)
  - BACILLUS INFECTION [None]
  - CATHETER SITE INFECTION [None]
  - ENTEROBACTER BACTERAEMIA [None]
  - ENTEROBACTER INFECTION [None]
  - HAEMATOCRIT DECREASED [None]
  - PLATELET COUNT DECREASED [None]
